FAERS Safety Report 4793941-7 (Version None)
Quarter: 2005Q4

REPORT INFORMATION
  Report Type: 
  Country: None (occurrence: None)
  Receive Date: 20051006
  Receipt Date: 20050721
  Transmission Date: 20060501
  Serious: No
  Sender: FDA-Public Use
  Company Number: HECT-10113

PATIENT
  Age: 48 Year
  Sex: Female
  Weight: 101.5 kg

DRUGS (18)
  1. HECTOROL [Suspect]
     Indication: HYPERPARATHYROIDISM SECONDARY
     Dosage: 6 MCG 3X/W IV
     Route: 042
     Dates: start: 20050124, end: 20050209
  2. ATORAX [Concomitant]
  3. MEDRALL [Concomitant]
  4. ZOCOR [Concomitant]
  5. ULTRAN [Concomitant]
  6. NEURONTIN [Concomitant]
  7. GLUCOTROL [Concomitant]
  8. NEPHROVITE [Concomitant]
  9. MIDONINE [Concomitant]
  10. VICODEN [Concomitant]
  11. REGLAN [Concomitant]
  12. CLOSAPAM [Concomitant]
  13. PRILOSEC [Concomitant]
  14. PLAVIX [Concomitant]
  15. ASPIRIN [Concomitant]
  16. RENAGEL [Concomitant]
  17. INFED [Concomitant]
  18. EPOGEN [Concomitant]

REACTIONS (2)
  - HYPOTENSION [None]
  - PRURITUS [None]
